FAERS Safety Report 5233290-6 (Version None)
Quarter: 2007Q1

REPORT INFORMATION
  Report Type: 
  Country: None (occurrence: None)
  Receive Date: 20070207
  Receipt Date: 20070130
  Transmission Date: 20070707
  Serious: Yes (Hospitalization)
  Sender: FDA-Public Use
  Company Number: DE-ABBOTT-06P-062-0354160-00

PATIENT
  Sex: Female
  Weight: 72 kg

DRUGS (3)
  1. HUMIRA [Suspect]
     Indication: RHEUMATOID ARTHRITIS
     Route: 058
     Dates: start: 20040401
  2. GLUCOCORTICOIDS [Concomitant]
     Indication: RHEUMATOID ARTHRITIS
     Route: 048
     Dates: start: 20060901
  3. ANALGETICS (NOS) [Concomitant]
     Indication: RHEUMATOID ARTHRITIS

REACTIONS (2)
  - HALLUCINATION [None]
  - SCHIZOPHRENIA, PARANOID TYPE [None]
